FAERS Safety Report 17171176 (Version 1)
Quarter: 2019Q4

REPORT INFORMATION
  Report Type: Spontaneous
  Country: US (occurrence: US)
  Receive Date: 20191218
  Receipt Date: 20191218
  Transmission Date: 20200122
  Serious: No
  Sender: FDA-Public Use
  Company Number: US-SUPERNUS PHARMACEUTICALS, INC.-2019SUP00184

PATIENT
  Sex: Female

DRUGS (2)
  1. TROKENDI XR [Suspect]
     Active Substance: TOPIRAMATE
     Indication: MIGRAINE
     Dosage: 100 MG
     Dates: start: 201901, end: 2019
  2. TROKENDI XR [Suspect]
     Active Substance: TOPIRAMATE
     Dosage: 150 UNK
     Dates: start: 2019

REACTIONS (3)
  - Drug ineffective [Recovering/Resolving]
  - Eye irritation [Not Recovered/Not Resolved]
  - Swelling of eyelid [Not Recovered/Not Resolved]

NARRATIVE: CASE EVENT DATE: 2019
